FAERS Safety Report 8589210-X (Version None)
Quarter: 2012Q3

REPORT INFORMATION
  Report Type: 
  Country: None (occurrence: None)
  Receive Date: 20120813
  Receipt Date: 20120806
  Transmission Date: 20120928
  Serious: Yes (Hospitalization)
  Sender: FDA-Public Use
  Company Number: FR-JNJFOC-20120803788

PATIENT
  Age: 51 Year
  Sex: Female

DRUGS (6)
  1. PANTOPRAZOLE SODIUM [Concomitant]
     Route: 065
  2. NAPROSYN [Concomitant]
     Route: 065
  3. BISOPROLOL FUMARATE [Concomitant]
     Route: 065
  4. REMICADE [Suspect]
     Indication: RHEUMATOID ARTHRITIS
     Route: 042
     Dates: start: 20120518, end: 20120518
  5. CRESTOR [Concomitant]
     Route: 065
  6. LERCANIDIPINE [Concomitant]
     Route: 065

REACTIONS (3)
  - PHARYNGEAL DISORDER [None]
  - FACE OEDEMA [None]
  - DYSPNOEA [None]
